FAERS Safety Report 23972495 (Version 4)
Quarter: 2025Q1

REPORT INFORMATION
  Report Type: Spontaneous
  Country: US (occurrence: US)
  Receive Date: 20240613
  Receipt Date: 20250124
  Transmission Date: 20250409
  Serious: No
  Sender: SANOFI AVENTIS
  Company Number: US-SA-SAC20240606000553

PATIENT
  Age: 73 Year
  Sex: Female

DRUGS (17)
  1. DUPIXENT [Suspect]
     Active Substance: DUPILUMAB
     Indication: Dermatitis atopic
     Dosage: 300 MG, QOW
     Route: 058
  2. AMOXICILLIN [Concomitant]
     Active Substance: AMOXICILLIN
  3. ELIQUIS [Concomitant]
     Active Substance: APIXABAN
  4. REPATHA [Concomitant]
     Active Substance: EVOLOCUMAB
  5. TYLENOL [Concomitant]
     Active Substance: ACETAMINOPHEN
  6. VIT D [VITAMIN D NOS] [Concomitant]
  7. CRESTOR [Concomitant]
     Active Substance: ROSUVASTATIN CALCIUM
  8. ESTRADIOL [Concomitant]
     Active Substance: ESTRADIOL
     Dosage: 0.05 MG, QD
  9. IRON [Concomitant]
     Active Substance: IRON
  10. MAXALT [Concomitant]
     Active Substance: RIZATRIPTAN BENZOATE
  11. MONTELUKAST [Concomitant]
     Active Substance: MONTELUKAST
  12. VASCEPA [Concomitant]
     Active Substance: ICOSAPENT ETHYL
  13. VENTOLIN HFA [Concomitant]
     Active Substance: ALBUTEROL SULFATE
  14. CYCLOBENZAPRINE [Concomitant]
     Active Substance: CYCLOBENZAPRINE
  15. COENZYME Q10 [Concomitant]
     Active Substance: DIETARY SUPPLEMENT\UBIDECARENONE
  16. VITAMIN B12 [Concomitant]
     Active Substance: CYANOCOBALAMIN
  17. CYCLOBENZAPRINE [Concomitant]
     Active Substance: CYCLOBENZAPRINE

REACTIONS (6)
  - Back pain [Unknown]
  - Neck pain [Unknown]
  - Conjunctivitis [Unknown]
  - Injection site pain [Unknown]
  - Arthralgia [Not Recovered/Not Resolved]
  - Inappropriate schedule of product administration [Unknown]

NARRATIVE: CASE EVENT DATE: 20240101
